FAERS Safety Report 8585724-7 (Version None)
Quarter: 2012Q3

REPORT INFORMATION
  Report Type: 
  Country: None (occurrence: None)
  Receive Date: 20120810
  Receipt Date: 20120801
  Transmission Date: 20120928
  Serious: Yes (Other)
  Sender: FDA-Public Use
  Company Number: JP-PFIZER INC-2012194607

PATIENT
  Age: 8 Decade
  Sex: Female

DRUGS (4)
  1. OLMESARTAN MEDOXOMIL [Concomitant]
     Dosage: UNK
     Route: 048
  2. ATELEC [Concomitant]
     Dosage: UNK
     Route: 048
  3. AMLODIPINE [Suspect]
     Indication: HYPERTENSION
     Dosage: 5 MG/DAY, UNK
     Route: 048
  4. AMLODIPINE [Suspect]
     Dosage: 10 MG/DAY, UNK
     Route: 048

REACTIONS (1)
  - PANCYTOPENIA [None]
